FAERS Safety Report 7463990-9 (Version None)
Quarter: 2011Q2

REPORT INFORMATION
  Report Type: 
  Country: None (occurrence: None)
  Receive Date: 20110506
  Receipt Date: 20101218
  Transmission Date: 20111010
  Serious: No
  Sender: FDA-Public Use
  Company Number: US-BAYER-2011-010460

PATIENT
  Age: 2 Year
  Sex: Male
  Weight: 13.605 kg

DRUGS (1)
  1. ALEVE (CAPLET) [Suspect]
     Dosage: 1 DF, ONCE, BOTTLE COUNT 100S
     Route: 048
     Dates: start: 20101218

REACTIONS (1)
  - PSYCHOMOTOR HYPERACTIVITY [None]
